APPROVED DRUG PRODUCT: TYLOX-325
Active Ingredient: ACETAMINOPHEN; OXYCODONE HYDROCHLORIDE
Strength: 325MG;5MG
Dosage Form/Route: CAPSULE;ORAL
Application: A088246 | Product #001
Applicant: ORTHO MCNEIL PHARMACEUTICAL INC
Approved: Nov 8, 1984 | RLD: No | RS: No | Type: DISCN